FAERS Safety Report 12913650 (Version 3)
Quarter: 2016Q4

REPORT INFORMATION
  Report Type: Report from Study
  Country: BR (occurrence: BR)
  Receive Date: 20161104
  Receipt Date: 20161130
  Transmission Date: 20170207
  Serious: Yes (Other)
  Sender: FDA-Public Use
  Company Number: PHHY2016BR059873

PATIENT
  Sex: Female
  Weight: 71 kg

DRUGS (1)
  1. SANDOSTATIN LAR DEPOT [Suspect]
     Active Substance: OCTREOTIDE ACETATE
     Indication: ACROMEGALY
     Dosage: 20 MG, QMO (EVERY 28 DAYS)
     Route: 030

REACTIONS (8)
  - Fatigue [Recovered/Resolved]
  - Application site pain [Recovered/Resolved]
  - Hyperthyroidism [Unknown]
  - Headache [Recovered/Resolved]
  - Dysuria [Recovered/Resolved]
  - Application site pain [Unknown]
  - Malaise [Recovered/Resolved]
  - Neoplasm [Unknown]

NARRATIVE: CASE EVENT DATE: 2016
